FAERS Safety Report 4538170-7 (Version None)
Quarter: 2004Q4

REPORT INFORMATION
  Report Type: 
  Country: None (occurrence: None)
  Receive Date: 20041221
  Receipt Date: 20041124
  Transmission Date: 20050328
  Serious: Yes (Other)
  Sender: FDA-Public Use
  Company Number: 805#1#2004-00033

PATIENT
  Age: 12 Day
  Sex: Female

DRUGS (4)
  1. PROSTANDIN                        (ALPROSTADIL (PAOD)) [Suspect]
     Indication: PULMONARY ARTERY STENOSIS
     Dosage: 1.43.3 MCG, INTRAVENOUS DRIP
     Route: 041
     Dates: start: 20040819, end: 20040820
  2. BECLOMETHASONE DIPROPIONATE [Concomitant]
  3. AMPHOTERICIN B [Concomitant]
  4. ALPROSTADIL [Concomitant]

REACTIONS (9)
  - BLOOD PRESSURE DECREASED [None]
  - BODY TEMPERATURE DECREASED [None]
  - HAEMOLYTIC ANAEMIA [None]
  - HEART RATE DECREASED [None]
  - HYPERBILIRUBINAEMIA NEONATAL [None]
  - JAUNDICE NEONATAL [None]
  - NEONATAL DISORDER [None]
  - PREMATURE BABY [None]
  - SMALL FOR DATES BABY [None]
